FAERS Safety Report 7565372-8 (Version None)
Quarter: 2011Q2

REPORT INFORMATION
  Report Type: 
  Country: None (occurrence: None)
  Receive Date: 20110623
  Receipt Date: 20110614
  Transmission Date: 20111010
  Serious: No
  Sender: FDA-Public Use
  Company Number: US-BIOGENIDEC-2011BI005641

PATIENT
  Age: 69 Year
  Sex: Female

DRUGS (1)
  1. TYSABRI [Suspect]
     Indication: MULTIPLE SCLEROSIS
     Route: 042
     Dates: start: 20070720

REACTIONS (6)
  - KIDNEY INFECTION [None]
  - PNEUMONIA [None]
  - ATRIAL FIBRILLATION [None]
  - BLINDNESS TRANSIENT [None]
  - URINARY TRACT INFECTION [None]
  - PAIN IN EXTREMITY [None]
